FAERS Safety Report 24991033 (Version 5)
Quarter: 2025Q4

REPORT INFORMATION
  Report Type: Report from Study
  Country: EU (occurrence: EU)
  Receive Date: 20250220
  Receipt Date: 20251106
  Transmission Date: 20260117
  Serious: Yes (Hospitalization, Other)
  Sender: ABBVIE
  Company Number: EU-ABBVIE-6136327

PATIENT
  Age: 75 Year
  Sex: Male

DRUGS (3)
  1. CARBIDOPA\LEVODOPA [Suspect]
     Active Substance: CARBIDOPA\LEVODOPA
     Indication: Parkinson^s disease
     Dosage: MD: 8.0 ML; CRT: 2.2 ML/H; ED: 1.0 ML
     Route: 050
     Dates: start: 20170215
  2. CARBIDOPA\LEVODOPA [Suspect]
     Active Substance: CARBIDOPA\LEVODOPA
     Dosage: MD 8.0 ML; CRD 2.3 ML/H; ED 1.0 ML
     Route: 050
  3. CARBIDOPA\LEVODOPA [Suspect]
     Active Substance: CARBIDOPA\LEVODOPA
     Dosage: DECREASED TO 1.7 ML/H;
     Route: 050

REACTIONS (12)
  - Depressed level of consciousness [Unknown]
  - Device breakage [Unknown]
  - Embedded device [Recovering/Resolving]
  - Stoma site haemorrhage [Unknown]
  - Duodenogastric reflux [Unknown]
  - Gastrointestinal obstruction [Unknown]
  - Hypocalcaemia [Unknown]
  - Hypertension [Unknown]
  - Dehydration [Unknown]
  - Flatulence [Unknown]
  - Faecaloma [Unknown]
  - Device leakage [Unknown]

NARRATIVE: CASE EVENT DATE: 20251001
